FAERS Safety Report 6603153-X (Version None)
Quarter: 2010Q1

REPORT INFORMATION
  Report Type: 
  Country: None (occurrence: None)
  Receive Date: 20100226
  Receipt Date: 20100212
  Transmission Date: 20100710
  Serious: Yes (Hospitalization)
  Sender: FDA-Public Use
  Company Number: US-ELI_LILLY_AND_COMPANY-US201002004549

PATIENT
  Sex: Female

DRUGS (15)
  1. FORTEO [Suspect]
     Indication: OSTEOPOROSIS
     Dosage: 20 UG, DAILY (1/D)
     Route: 065
  2. CALCIUM [Concomitant]
     Dosage: 500 D/F, UNKNOWN
     Route: 065
  3. VITAMIN D [Concomitant]
     Dosage: UNK, UNKNOWN
     Route: 065
  4. PLAVIX [Concomitant]
     Dosage: UNK, UNKNOWN
     Route: 065
  5. DIGOXIN [Concomitant]
     Dosage: UNK, UNKNOWN
     Route: 065
  6. AGGRENOX [Concomitant]
     Dosage: UNK, UNKNOWN
     Route: 065
  7. FUROSEMIDE [Concomitant]
     Dosage: UNK, UNKNOWN
     Route: 065
  8. LISINOPRIL [Concomitant]
     Dosage: UNK, UNKNOWN
     Route: 065
  9. MECLIZINE [Concomitant]
     Dosage: UNK, UNKNOWN
     Route: 065
  10. METOPROLOL TARTRATE [Concomitant]
     Dosage: UNK, UNKNOWN
     Route: 065
  11. MULTI-VITAMIN [Concomitant]
     Dosage: UNK, UNKNOWN
     Route: 065
  12. POTASSIUM [Concomitant]
     Dosage: UNK, UNKNOWN
     Route: 065
  13. PREDNISONE [Concomitant]
     Dosage: UNK, UNKNOWN
     Route: 065
  14. ZOCOR [Concomitant]
     Dosage: UNK, UNKNOWN
     Route: 065
  15. MUCINEX DM [Concomitant]
     Dosage: UNK, UNKNOWN
     Route: 065

REACTIONS (7)
  - CARDIAC FAILURE CONGESTIVE [None]
  - CHRONIC OBSTRUCTIVE PULMONARY DISEASE [None]
  - CORONARY ARTERY DISEASE [None]
  - DIZZINESS [None]
  - HYPERTENSION [None]
  - OSTEOPOROSIS [None]
  - SYNCOPE [None]
